FAERS Safety Report 5000933-1 (Version None)
Quarter: 2006Q2

REPORT INFORMATION
  Report Type: 
  Country: None (occurrence: None)
  Receive Date: 20060512
  Receipt Date: 20060125
  Transmission Date: 20061013
  Serious: Yes (Other)
  Sender: FDA-Public Use
  Company Number: US-ROCHE-433851

PATIENT
  Age: 16 Year
  Sex: Male
  Weight: 77.1 kg

DRUGS (5)
  1. ACCUTANE [Suspect]
     Indication: ACNE
     Route: 048
     Dates: start: 19960615, end: 19990615
  2. ACCUTANE [Suspect]
     Route: 048
     Dates: start: 20020307, end: 20020608
  3. TYLENOL (CAPLET) [Concomitant]
  4. TUMS [Concomitant]
     Indication: ABDOMINAL PAIN
  5. ZOLOFT [Concomitant]
     Indication: DEPRESSION
     Dates: start: 19970615

REACTIONS (8)
  - BLOOD TRIGLYCERIDES INCREASED [None]
  - COLITIS [None]
  - DEPRESSION [None]
  - EPISTAXIS [None]
  - INFLAMMATORY BOWEL DISEASE [None]
  - IRRITABLE BOWEL SYNDROME [None]
  - SKIN HAEMORRHAGE [None]
  - SUICIDAL IDEATION [None]
